FAERS Safety Report 8034674-3 (Version None)
Quarter: 2012Q1

REPORT INFORMATION
  Report Type: 
  Country: None (occurrence: None)
  Receive Date: 20120111
  Receipt Date: 20120104
  Transmission Date: 20120608
  Serious: Yes (Other)
  Sender: FDA-Public Use
  Company Number: JP-BRISTOL-MYERS SQUIBB COMPANY-16157737

PATIENT
  Age: 82 Year
  Sex: Female
  Weight: 35 kg

DRUGS (17)
  1. CHLORPHENIRAMINE MALEATE [Concomitant]
     Indication: PREMEDICATION
     Dosage: TRADE NAME:CHLODARMIN
     Route: 042
     Dates: start: 20090713
  2. TEGAFUR [Concomitant]
     Indication: RECTAL CANCER
     Route: 048
  3. BEVACIZUMAB [Concomitant]
     Indication: METASTASES TO LYMPH NODES
  4. FLUOROURACIL [Concomitant]
     Indication: METASTASES TO LYMPH NODES
     Dosage: 13JL-13JL09400MG/M2,10AG09-300MG/M2,13JUL-13JL092400MG/M2,10AG09- 2000MG/M2,19OT09- 2000MG/M2,IV DP
     Route: 040
     Dates: start: 20090713
  5. ERBITUX [Suspect]
     Indication: RECTAL CANCER
     Dosage: 13-13,27JUL-21DEC09=250MG/M2,28DEC9-22MAR=200MG/M2,29MAR10=150MG/M2 12JAN11,RESTARTED WITH 150MG/M2
     Route: 042
     Dates: start: 20090713
  6. IRINOTECAN HCL [Concomitant]
     Indication: RECTAL CANCER
     Dosage: 13JUL-13JUL09=150MG/M2,10AUG09- 120MG/M2,19OCT09- 120MG,1 IN 4WK,1 IN 2WKS
     Route: 042
     Dates: start: 20090713
  7. OXALIPLATIN [Concomitant]
     Indication: RECTAL CANCER METASTATIC
  8. OXALIPLATIN [Concomitant]
     Indication: METASTASES TO LYMPH NODES
  9. IRINOTECAN HCL [Concomitant]
     Indication: METASTASES TO LYMPH NODES
     Dosage: 13JUL-13JUL09=150MG/M2,10AUG09- 120MG/M2,19OCT09- 120MG,1 IN 4WK,1 IN 2WKS
     Route: 042
     Dates: start: 20090713
  10. FLUOROURACIL [Concomitant]
     Indication: RECTAL CANCER
     Dosage: 13JL-13JL09400MG/M2,10AG09-300MG/M2,13JUL-13JL092400MG/M2,10AG09- 2000MG/M2,19OT09- 2000MG/M2,IV DP
     Route: 040
     Dates: start: 20090713
  11. LEUCOVORIN CALCIUM [Concomitant]
     Indication: RECTAL CANCER
     Dosage: 13JUL09- 1/4WK,7SEP09- 1/3WK,19OCT09- 1/2WK
     Route: 041
     Dates: start: 20090713
  12. ORGADRONE [Concomitant]
     Indication: PREMEDICATION
     Route: 042
     Dates: start: 20090712
  13. LEUCOVORIN CALCIUM [Concomitant]
     Indication: METASTASES TO LYMPH NODES
  14. LEUCOVORIN CALCIUM [Concomitant]
     Indication: RECTAL CANCER METASTATIC
  15. ERBITUX [Suspect]
     Indication: COLORECTAL CANCER
     Dosage: 13-13,27JUL-21DEC09=250MG/M2,28DEC9-22MAR=200MG/M2,29MAR10=150MG/M2 12JAN11,RESTARTED WITH 150MG/M2
     Route: 042
     Dates: start: 20090713
  16. KYTRIL [Concomitant]
     Indication: PROPHYLAXIS OF NAUSEA AND VOMITING
     Route: 042
     Dates: start: 20090713
  17. AMLODIPINE [Concomitant]
     Indication: HYPERTENSION
     Route: 048

REACTIONS (8)
  - SKIN ULCER [None]
  - BLOOD SODIUM DECREASED [None]
  - BLOOD POTASSIUM DECREASED [None]
  - LEUKOPENIA [None]
  - DRY SKIN [None]
  - DERMATITIS ACNEIFORM [None]
  - NEUTROPENIA [None]
  - PARONYCHIA [None]
